FAERS Safety Report 6441839-0 (Version None)
Quarter: 2009Q4

REPORT INFORMATION
  Report Type: 
  Country: None (occurrence: None)
  Receive Date: 20091112
  Receipt Date: 20091104
  Transmission Date: 20100525
  Serious: Yes (Other)
  Sender: FDA-Public Use
  Company Number: A0815708A

PATIENT
  Age: 80 Year
  Sex: Female

DRUGS (3)
  1. UREA PEROXIDE [Suspect]
     Dosage: AURAL
  2. LISINOPRIL [Concomitant]
  3. EZETIMIBE [Concomitant]

REACTIONS (5)
  - DEAFNESS TRANSITORY [None]
  - DRUG ADMINISTRATION ERROR [None]
  - DRUG INEFFECTIVE [None]
  - EAR PAIN [None]
  - HEADACHE [None]
